FAERS Safety Report 10395893 (Version 4)
Quarter: 2015Q2

REPORT INFORMATION
  Report Type: Spontaneous
  Country: US (occurrence: US)
  Receive Date: 20140820
  Receipt Date: 20150527
  Transmission Date: 20150821
  Serious: Yes (Other)
  Sender: FDA-Public Use
  Company Number: US-PFIZER INC-2014229180

PATIENT
  Age: 53 Year
  Sex: Female
  Weight: 60.8 kg

DRUGS (14)
  1. DEPO-PROVERA [Suspect]
     Active Substance: MEDROXYPROGESTERONE ACETATE
     Dosage: UNK
  2. HUMALOG [Concomitant]
     Active Substance: INSULIN LISPRO
     Indication: DIABETES MELLITUS
     Dosage: 10 UNITS AND 8 UNITS, 2X/DAY
     Dates: start: 201212
  3. FERROUS SULFATE [Concomitant]
     Active Substance: FERROUS SULFATE\FERROUS SULFATE, DRIED
     Indication: ANAEMIA
     Dosage: 325 MG, (1-3 TIMES 1 DAY DURING PERIOD)
     Dates: start: 201001
  4. DEPO-PROVERA [Suspect]
     Active Substance: MEDROXYPROGESTERONE ACETATE
     Indication: UTERINE HAEMORRHAGE
     Dosage: 150 MG, EVERY 3 MONTHS
     Route: 030
     Dates: start: 20130918, end: 20140520
  5. LEVOTHYROXINE [Concomitant]
     Active Substance: LEVOTHYROXINE
     Indication: HYPOTHYROIDISM
     Dosage: UNK
     Dates: start: 2010, end: 201501
  6. LANTUS [Concomitant]
     Active Substance: INSULIN GLARGINE
     Indication: DIABETES MELLITUS
     Dosage: 20 IU, UNK
     Dates: start: 201108
  7. POLYMYXIN B W/TRIMETHOPRIM [Concomitant]
     Dosage: 1-10000MG U/ML SOLUTION
     Dates: start: 201406
  8. MEDROXYPROGESTERONE ACETATE. [Suspect]
     Active Substance: MEDROXYPROGESTERONE ACETATE
     Indication: UTERINE HAEMORRHAGE
     Dosage: 10 MG, 1X/DAY
     Dates: start: 20130628, end: 20130727
  9. MEDROXYPROGESTERONE ACETATE. [Suspect]
     Active Substance: MEDROXYPROGESTERONE ACETATE
     Dosage: 10 MG, 1X/DAY
     Dates: start: 20130904, end: 20131001
  10. METRONIDAZOLE. [Concomitant]
     Active Substance: METRONIDAZOLE
     Indication: ROSACEA
     Dosage: UNK
     Dates: start: 201404, end: 201503
  11. LISPRO INSULIN [Concomitant]
     Active Substance: INSULIN LISPRO
     Indication: TYPE 2 DIABETES MELLITUS
     Dosage: UNK
  12. SENNA [Concomitant]
     Active Substance: SENNA LEAF\SENNOSIDES\SENNOSIDES A AND B
     Dosage: UNK
     Dates: start: 201407, end: 201408
  13. ZETIA [Concomitant]
     Active Substance: EZETIMIBE
     Dosage: UNK
     Dates: start: 201408, end: 201501
  14. ERYTHROMYCIN. [Concomitant]
     Active Substance: ERYTHROMYCIN
     Dosage: 5 MG/GM
     Dates: start: 201409

REACTIONS (17)
  - Glycosylated haemoglobin increased [Not Recovered/Not Resolved]
  - Angina pectoris [Not Recovered/Not Resolved]
  - Acne [Not Recovered/Not Resolved]
  - Blood glucose fluctuation [Recovered/Resolved]
  - Somnolence [Unknown]
  - Eye infection [Not Recovered/Not Resolved]
  - Pruritus [Recovered/Resolved]
  - Weight increased [Not Recovered/Not Resolved]
  - Vascular pain [Not Recovered/Not Resolved]
  - Visual acuity reduced [Not Recovered/Not Resolved]
  - Hypertension [Unknown]
  - Rash [Not Recovered/Not Resolved]
  - Alopecia [Not Recovered/Not Resolved]
  - Oedema [Not Recovered/Not Resolved]
  - Stress [Not Recovered/Not Resolved]
  - Drug ineffective for unapproved indication [Not Recovered/Not Resolved]
  - Thyroid disorder [Unknown]

NARRATIVE: CASE EVENT DATE: 201309
